FAERS Safety Report 24459573 (Version 1)
Quarter: 2024Q4

REPORT INFORMATION
  Report Type: Report from Study
  Country: CA (occurrence: CA)
  Receive Date: 20241018
  Receipt Date: 20241018
  Transmission Date: 20250115
  Serious: No
  Sender: ROCHE
  Company Number: CA-ROCHE-3549808

PATIENT
  Age: 58 Year
  Sex: Male

DRUGS (19)
  1. RITUXAN [Suspect]
     Active Substance: RITUXIMAB
     Indication: Granulomatosis with polyangiitis
     Route: 041
     Dates: start: 20180731, end: 20190622
  2. RITUXAN [Suspect]
     Active Substance: RITUXIMAB
     Indication: Rheumatoid arthritis
     Route: 042
     Dates: start: 20200113, end: 20200203
  3. RITUXAN [Suspect]
     Active Substance: RITUXIMAB
     Indication: Vasculitis
     Dosage: DRUG DOSE FIRST ADMINISTERED IS 1000 MG MILLIGRAM(S)
     Route: 042
     Dates: start: 20200814, end: 20210708
  4. RITUXAN [Suspect]
     Active Substance: RITUXIMAB
     Route: 042
     Dates: start: 20220422
  5. ALENDRONATE [Concomitant]
     Active Substance: ALENDRONATE SODIUM
     Dosage: DRUG DOSE FIRST ADMINISTERED IS 70 MG MILLIGRAM(S)
  6. AMLODIPINE [Concomitant]
     Active Substance: AMLODIPINE BESYLATE
     Dosage: DRUG DOSE FIRST ADMINISTERED IS 5 MG MILLIGRAM(S)
  7. BENADRYL [Concomitant]
     Active Substance: DIPHENHYDRAMINE HYDROCHLORIDE
  8. CELLCEPT [Concomitant]
     Active Substance: MYCOPHENOLATE MOFETIL
     Indication: Granulomatosis with polyangiitis
  9. CITALOPRAM [Concomitant]
     Active Substance: CITALOPRAM
  10. FOLIC ACID [Concomitant]
     Active Substance: FOLIC ACID
  11. HYDROCHLOROTHIAZIDE [Concomitant]
     Active Substance: HYDROCHLOROTHIAZIDE
  12. METHOTREXATE [Concomitant]
     Active Substance: METHOTREXATE
  13. PREDNISONE [Concomitant]
     Active Substance: PREDNISONE
  14. PREDNISONE [Concomitant]
     Active Substance: PREDNISONE
  15. SOLU-MEDROL [Concomitant]
     Active Substance: METHYLPREDNISOLONE SODIUM SUCCINATE
     Route: 042
  16. SULFATRIM [Concomitant]
     Active Substance: SULFAMETHOXAZOLE\TRIMETHOPRIM
  17. TYLENOL [Concomitant]
     Active Substance: ACETAMINOPHEN
     Route: 048
  18. VITAMIN D [Concomitant]
     Active Substance: VITAMIN D NOS
  19. VITAMIN D [Concomitant]
     Active Substance: VITAMIN D NOS

REACTIONS (1)
  - Granulomatosis with polyangiitis [Unknown]
